FAERS Safety Report 11514840 (Version 4)
Quarter: 2015Q3

REPORT INFORMATION
  Report Type: Spontaneous
  Country: US (occurrence: US)
  Receive Date: 20150916
  Receipt Date: 20150930
  Transmission Date: 20151125
  Serious: Yes (Other)
  Sender: FDA-Public Use
  Company Number: US-BAYER-2015-411554

PATIENT
  Age: 3 Year
  Sex: Female
  Weight: 13.15 kg

DRUGS (2)
  1. CHILDREN CLARITIN ALLERGY [Suspect]
     Active Substance: LORATADINE
     Dosage: 2 TEASPOONS PER DAY
     Route: 048
     Dates: start: 20150825, end: 20150827
  2. MIRALAX [Suspect]
     Active Substance: POLYETHYLENE GLYCOL 3350
     Indication: GASTROINTESTINAL MOTILITY DISORDER

REACTIONS (7)
  - Diarrhoea [None]
  - Urinary hesitation [None]
  - Urinary retention [None]
  - Product use issue [None]
  - Oliguria [None]
  - Constipation [None]
  - Nausea [None]

NARRATIVE: CASE EVENT DATE: 201508
